FAERS Safety Report 9743166 (Version 1)
Quarter: 2013Q4

REPORT INFORMATION
  Report Type: Spontaneous
  Country: US (occurrence: US)
  Receive Date: 20131210
  Receipt Date: 20131210
  Transmission Date: 20140711
  Serious: No
  Sender: FDA-Public Use
  Company Number: US-GILEAD-2009-0024469

PATIENT
  Sex: Female
  Weight: 95 kg

DRUGS (15)
  1. LETAIRIS [Suspect]
     Indication: PULMONARY ARTERIAL HYPERTENSION
     Route: 048
     Dates: start: 20090427, end: 20090925
  2. COUMADIN [Concomitant]
  3. REVATIO [Concomitant]
  4. REGLAN [Concomitant]
  5. DARVOCET-N [Concomitant]
  6. AMBIEN CR [Concomitant]
  7. PREMARIN VAG CRE [Concomitant]
  8. PREDNISONE [Concomitant]
  9. VISTARIL [Concomitant]
  10. SYNTHROID [Concomitant]
  11. ATENOLOL [Concomitant]
  12. NEXIUM [Concomitant]
  13. CALCIUM [Concomitant]
  14. VITAMIN D [Concomitant]
  15. MOVE FREE [Concomitant]

REACTIONS (2)
  - Pruritus [Unknown]
  - Rash [Unknown]
